FAERS Safety Report 8925343 (Version 2)
Quarter: 2012Q4

REPORT INFORMATION
  Report Type: Report from Study
  Country: US (occurrence: US)
  Receive Date: 20121126
  Receipt Date: 20121204
  Transmission Date: 20130627
  Serious: Yes (Hospitalization)
  Sender: FDA-Public Use
  Company Number: US-ROCHE-1155631

PATIENT
  Age: 58 Year
  Sex: Female
  Weight: 74.1 kg

DRUGS (2)
  1. TRASTUZUMAB [Suspect]
     Indication: BREAST CANCER
     Dosage: most recent recent dose :04/Nov/2012
     Route: 042
  2. IXABEPILONE [Suspect]
     Indication: BREAST CANCER
     Dosage: most recent recent dose :04/Nov/2012
     Route: 042

REACTIONS (2)
  - Febrile neutropenia [Not Recovered/Not Resolved]
  - Neutropenic sepsis [Not Recovered/Not Resolved]
